FAERS Safety Report 5326738-X (Version None)
Quarter: 2007Q2

REPORT INFORMATION
  Report Type: 
  Country: None (occurrence: None)
  Receive Date: 20070516
  Receipt Date: 20070502
  Transmission Date: 20071010
  Serious: Yes (Death)
  Sender: FDA-Public Use
  Company Number: DE-GENENTECH-235510

PATIENT
  Sex: Female
  Weight: 80 kg

DRUGS (5)
  1. TRASTUZUMAB [Suspect]
     Indication: BREAST CANCER
     Dosage: 8 MG/KG, SINGLE
     Route: 042
     Dates: start: 20060922
  2. TRASTUZUMAB [Suspect]
     Dosage: 6 MG/KG, Q3W
     Route: 042
  3. EPIRUBICIN [Suspect]
     Indication: BREAST CANCER
     Dosage: 90 MG/M2, Q3W
     Route: 042
  4. CYCLOPHOSPHAMIDE [Suspect]
     Indication: BREAST CANCER
     Dosage: 600 MG/M2, Q3W
     Route: 042
  5. DOCETAXEL [Suspect]
     Indication: BREAST CANCER
     Dosage: 187 MG, Q3W
     Route: 042
     Dates: start: 20070108

REACTIONS (1)
  - DEATH [None]
